FAERS Safety Report 7377254-5 (Version None)
Quarter: 2011Q1

REPORT INFORMATION
  Report Type: 
  Country: None (occurrence: None)
  Receive Date: 20110315
  Receipt Date: 20110304
  Transmission Date: 20110831
  Serious: Yes (Other)
  Sender: FDA-Public Use
  Company Number: ACO_21909_2011

PATIENT
  Age: 41 Year
  Sex: Male

DRUGS (6)
  1. REBIF [Concomitant]
  2. WELLBUTRIN [Concomitant]
  3. ALEVE [Concomitant]
  4. PROVIGIL [Concomitant]
  5. ACIPHEX [Concomitant]
  6. AMPYRA [Suspect]
     Indication: PRODUCT USED FOR UNKNOWN INDICATION
     Dosage: 10 MG
     Dates: start: 20101101, end: 20101101

REACTIONS (10)
  - CONVULSION [None]
  - URINARY TRACT INFECTION [None]
  - LOSS OF CONSCIOUSNESS [None]
  - DISORIENTATION [None]
  - GAIT DISTURBANCE [None]
  - JOINT INJURY [None]
  - CONFUSIONAL STATE [None]
  - NECK INJURY [None]
  - FALL [None]
  - DYSURIA [None]
